FAERS Safety Report 9208967 (Version 1)
Quarter: 2013Q1

REPORT INFORMATION
  Report Type: Spontaneous
  Country: US (occurrence: None)
  Receive Date: 20120820
  Receipt Date: 20120820
  Transmission Date: 20140127
  Serious: Yes (Hospitalization, Other)
  Sender: FDA-Public Use
  Company Number: 061231

PATIENT
  Age: 23 Year
  Sex: Female
  Weight: 65.9 kg

DRUGS (2)
  1. LACOSAMIDE [Suspect]
     Indication: CONVULSION
     Route: 048
     Dates: start: 20120609, end: 20120611
  2. OXCARBAZEPINE [Suspect]
     Route: 048
     Dates: start: 20120609, end: 20120610

REACTIONS (3)
  - Convulsion [None]
  - Hyponatraemia [None]
  - Diarrhoea [None]
